FAERS Safety Report 5857868-1 (Version None)
Quarter: 2008Q3

REPORT INFORMATION
  Report Type: 
  Country: None (occurrence: None)
  Receive Date: 20080818
  Receipt Date: 20080627
  Transmission Date: 20090109
  Serious: No
  Sender: FDA-Public Use
  Company Number: WAES 0806USA08970

PATIENT
  Age: 53 Year
  Sex: Female

DRUGS (2)
  1. JANUVIA [Suspect]
     Indication: TYPE 2 DIABETES MELLITUS
     Dosage: 50 MG/DAILY/PO ; 50 MG/DAILY/PO
     Route: 048
     Dates: start: 20080501, end: 20080501
  2. JANUVIA [Suspect]
     Indication: TYPE 2 DIABETES MELLITUS
     Dosage: 50 MG/DAILY/PO ; 50 MG/DAILY/PO
     Route: 048
     Dates: start: 20080623, end: 20080626

REACTIONS (9)
  - ABDOMINAL PAIN UPPER [None]
  - BLOOD GLUCOSE INCREASED [None]
  - DIZZINESS [None]
  - EYE PRURITUS [None]
  - FLATULENCE [None]
  - INFLUENZA LIKE ILLNESS [None]
  - MIGRAINE [None]
  - PAIN [None]
  - PALPITATIONS [None]
